FAERS Safety Report 5939039-3 (Version None)
Quarter: 2008Q4

REPORT INFORMATION
  Report Type: 
  Country: None (occurrence: None)
  Receive Date: 20081103
  Receipt Date: 20081030
  Transmission Date: 20090506
  Serious: Yes (Hospitalization)
  Sender: FDA-Public Use
  Company Number: FR-WYE-G02472808

PATIENT
  Sex: Male

DRUGS (9)
  1. TAZOCILLINE [Suspect]
     Indication: SEPTIC SHOCK
     Dosage: UNKNOWN
     Route: 042
     Dates: start: 20071213
  2. TAZOCILLINE [Suspect]
     Dosage: UNKNOWN
     Route: 042
     Dates: start: 20080105, end: 20080118
  3. VFEND [Suspect]
     Indication: ASPERGILLOSIS
     Route: 048
     Dates: start: 20080121
  4. AMIKLIN [Concomitant]
     Dosage: UNKNOWN
     Dates: start: 20071224, end: 20071228
  5. IMOVANE [Concomitant]
     Indication: INSOMNIA
     Route: 048
     Dates: start: 20080119
  6. PREVISCAN [Concomitant]
     Indication: ISCHAEMIC HEART DISEASE PROPHYLAXIS
     Route: 048
     Dates: start: 20080129
  7. BACTRIM [Suspect]
     Indication: INFECTION PROPHYLAXIS
     Route: 048
     Dates: start: 20080111, end: 20080130
  8. CANCIDAS [Suspect]
     Indication: ASPERGILLOSIS
     Route: 042
     Dates: start: 20071226, end: 20080120
  9. ENDOXAN [Suspect]
     Indication: WEGENER'S GRANULOMATOSIS
     Route: 042
     Dates: start: 20080114

REACTIONS (5)
  - ALANINE AMINOTRANSFERASE INCREASED [None]
  - ASPERGILLOSIS [None]
  - GAMMA-GLUTAMYLTRANSFERASE INCREASED [None]
  - PERITONITIS [None]
  - WEGENER'S GRANULOMATOSIS [None]
